FAERS Safety Report 6011496-6 (Version None)
Quarter: 2008Q4

REPORT INFORMATION
  Report Type: 
  Country: None (occurrence: None)
  Receive Date: 20081218
  Receipt Date: 20081216
  Transmission Date: 20090506
  Serious: Yes (Other)
  Sender: FDA-Public Use
  Company Number: CA-WYE-G02796208

PATIENT
  Age: 50 Year
  Sex: Male

DRUGS (2)
  1. VENLAFAXINE HYDROCHLORIDE [Suspect]
     Route: 048
     Dates: start: 20080101, end: 20080101
  2. ALLOPURINOL [Concomitant]

REACTIONS (1)
  - TUBULOINTERSTITIAL NEPHRITIS [None]
